FAERS Safety Report 7466086-5 (Version None)
Quarter: 2011Q2

REPORT INFORMATION
  Report Type: 
  Country: None (occurrence: None)
  Receive Date: 20110509
  Receipt Date: 20100629
  Transmission Date: 20111010
  Serious: No
  Sender: FDA-Public Use
  Company Number: US-ALEXION-A201000760

PATIENT
  Sex: Male

DRUGS (6)
  1. CENTRUM SILVER                     /01292501/ [Concomitant]
     Dosage: UNK
     Route: 048
  2. ROBAXIN [Concomitant]
     Indication: PAIN
     Dosage: 1000 MG, PRN
     Route: 048
  3. FOLIC ACID [Concomitant]
     Indication: PAROXYSMAL NOCTURNAL HAEMOGLOBINURIA
     Dosage: 1 MG, BID
     Route: 048
  4. IRON [Concomitant]
     Dosage: UNK
     Route: 048
  5. SOLIRIS [Suspect]
     Indication: PAROXYSMAL NOCTURNAL HAEMOGLOBINURIA
     Dosage: 600 MG, QW
     Route: 042
  6. COMPAZINE [Concomitant]
     Indication: NAUSEA
     Dosage: UNK
     Route: 048

REACTIONS (4)
  - HEADACHE [None]
  - FATIGUE [None]
  - RHINORRHOEA [None]
  - PAIN IN EXTREMITY [None]
